FAERS Safety Report 9631165 (Version 2)
Quarter: 2013Q4

REPORT INFORMATION
  Report Type: Spontaneous
  Country: CO (occurrence: CO)
  Receive Date: 20131018
  Receipt Date: 20131023
  Transmission Date: 20140711
  Serious: Yes (Other)
  Sender: FDA-Public Use
  Company Number: CO-MERCK-1310COL007088

PATIENT
  Age: 67 Year
  Sex: Female

DRUGS (4)
  1. PEG-INTRON [Suspect]
     Indication: HEPATITIS C
     Dosage: REDIPEN, PRELFILLED PENS
     Route: 058
     Dates: start: 20130809, end: 201310
  2. PEG-INTRON [Suspect]
     Dosage: REDIPEN, PREFILLED PENS
     Route: 058
     Dates: start: 201310
  3. REBETOL [Suspect]
     Indication: HEPATITIS C
     Dosage: 1000 MG, QD
     Route: 048
     Dates: start: 20130809
  4. VICTRELIS [Suspect]
     Indication: HEPATITIS C
     Dosage: 2400 MG, QD
     Route: 048
     Dates: start: 20130809

REACTIONS (1)
  - Pancytopenia [Recovered/Resolved]
